FAERS Safety Report 11074705 (Version 1)
Quarter: 2015Q2

REPORT INFORMATION
  Report Type: Spontaneous
  Country: DE (occurrence: None)
  Receive Date: 20150427
  Receipt Date: 20150427
  Transmission Date: 20150821
  Serious: Yes (Other)
  Sender: FDA-Public Use
  Company Number: DE-H14001-15-00295

PATIENT
  Sex: Female

DRUGS (8)
  1. OXALIPLATIN (OXALIPLATIN) (UNKNOWN) (OXALIPLATIN) [Suspect]
     Active Substance: OXALIPLATIN
     Indication: PANCREATIC CARCINOMA METASTATIC
     Dosage: INITIAL DOSE REDUCED TO 75%, AND SUBSEQUENTLY TO 60% OF THE STANDARD DOSE. (CYCLICAL), UNKNOWN
     Dates: start: 201102, end: 201404
  2. IRINOTECAN (IRINOTECAN) (UNKNOWN) (IRINOTECAN) [Suspect]
     Active Substance: IRINOTECAN
     Indication: PANCREATIC CARCINOMA METASTATIC
     Dosage: INITIAL DOSE REDUCED TO 75%, AND SUBSEQUENTLY TO 60% OF THE STANDARD DOSE. (CYCLICAL), UNKNOWN
     Dates: start: 201102, end: 201404
  3. FOLINIC ACID (CALCIUM FOLINTE) (UNKNON) (CALCIUM FOLINATE) [Suspect]
     Active Substance: LEUCOVORIN
     Indication: METASTASES TO LIVER
     Dosage: INITIAL DOSE REDUCED TO 75%, AND SUBSEQUENTLY TO 60% OF THE STANDARD DOSE. (CYCLICAL), UNKNOWN
     Dates: start: 201102, end: 201404
  4. FOLINIC ACID (CALCIUM FOLINTE) (UNKNON) (CALCIUM FOLINATE) [Suspect]
     Active Substance: LEUCOVORIN
     Indication: PANCREATIC CARCINOMA METASTATIC
     Dosage: INITIAL DOSE REDUCED TO 75%, AND SUBSEQUENTLY TO 60% OF THE STANDARD DOSE. (CYCLICAL), UNKNOWN
     Dates: start: 201102, end: 201404
  5. FLUORURACYL (FLUOROURACIL) (UNKNOWN) (FLUOROURACIL) [Suspect]
     Active Substance: FLUOROURACIL
     Indication: PANCREATIC CARCINOMA METASTATIC
     Dosage: INITIAL DOSE REDUCED TO 75%, AND SUBSEQUENTLY TO 60% OF THE STANDARD DOSE. (CYCLICAL), UNKNOWN
     Dates: start: 201102, end: 201404
  6. FLUORURACYL (FLUOROURACIL) (UNKNOWN) (FLUOROURACIL) [Suspect]
     Active Substance: FLUOROURACIL
     Indication: METASTASES TO LIVER
     Dosage: INITIAL DOSE REDUCED TO 75%, AND SUBSEQUENTLY TO 60% OF THE STANDARD DOSE. (CYCLICAL), UNKNOWN
     Dates: start: 201102, end: 201404
  7. IRINOTECAN (IRINOTECAN) (UNKNOWN) (IRINOTECAN) [Suspect]
     Active Substance: IRINOTECAN
     Indication: METASTASES TO LIVER
     Dosage: INITIAL DOSE REDUCED TO 75%, AND SUBSEQUENTLY TO 60% OF THE STANDARD DOSE. (CYCLICAL), UNKNOWN
     Dates: start: 201102, end: 201404
  8. OXALIPLATIN (OXALIPLATIN) (UNKNOWN) (OXALIPLATIN) [Suspect]
     Active Substance: OXALIPLATIN
     Indication: METASTASES TO LIVER
     Dosage: INITIAL DOSE REDUCED TO 75%, AND SUBSEQUENTLY TO 60% OF THE STANDARD DOSE. (CYCLICAL), UNKNOWN
     Dates: start: 201102, end: 201404

REACTIONS (5)
  - Polyneuropathy [None]
  - Toxicity to various agents [None]
  - Mucosal inflammation [None]
  - Thrombocytopenia [None]
  - Leukopenia [None]

NARRATIVE: CASE EVENT DATE: 2011
